FAERS Safety Report 22889953 (Version 4)
Quarter: 2023Q4

REPORT INFORMATION
  Report Type: Report from Study
  Country: US (occurrence: US)
  Receive Date: 20230831
  Receipt Date: 20231030
  Transmission Date: 20240110
  Serious: Yes (Death)
  Sender: FDA-Public Use
  Company Number: US-PFIZER INC-PV202300146797

PATIENT
  Age: 76 Year
  Sex: Male
  Weight: 56.236 kg

DRUGS (1)
  1. ELRANATAMAB [Suspect]
     Active Substance: ELRANATAMAB
     Indication: Plasma cell myeloma
     Dosage: 44 MG, EVERY WEEK
     Route: 058
     Dates: start: 20230327, end: 20230807

REACTIONS (1)
  - Death [Fatal]

NARRATIVE: CASE EVENT DATE: 20230827
